FAERS Safety Report 9058571 (Version 1)
Quarter: 2013Q1

REPORT INFORMATION
  Report Type: Spontaneous
  Country: BR (occurrence: BR)
  Receive Date: 20130211
  Receipt Date: 20130211
  Transmission Date: 20140127
  Serious: Yes (Other)
  Sender: FDA-Public Use
  Company Number: PHHY2012BR074194

PATIENT
  Sex: Female

DRUGS (7)
  1. FORASEQ [Suspect]
     Indication: DYSPNOEA
     Dosage: 2 DF, DAILY
  2. LASIX [Concomitant]
     Indication: CARDIAC FAILURE
     Dosage: 1.5 DF, DAILY
     Route: 048
     Dates: start: 201207
  3. METHYLDOPA [Concomitant]
     Indication: HYPERTENSION
     Dosage: 2 DF, DAILY
     Route: 048
  4. METFORMIN [Concomitant]
     Indication: DIABETES MELLITUS
     Dosage: 2 DF, DAILY
     Route: 048
  5. SIMVASTATIN [Concomitant]
     Indication: DYSLIPIDAEMIA
     Dosage: 1 DF, DAILY
     Route: 048
  6. SELOZOK [Concomitant]
     Indication: CARDIAC FAILURE
     Dosage: 1 DF, DAILY
     Route: 048
  7. MAREVAN [Concomitant]
     Indication: CARDIAC FAILURE
     Dosage: 0.5 DF, DAILY
     Route: 048

REACTIONS (2)
  - Myocardial infarction [Recovering/Resolving]
  - Depression [Not Recovered/Not Resolved]
